FAERS Safety Report 24604806 (Version 1)
Quarter: 2024Q4

REPORT INFORMATION
  Report Type: Spontaneous
  Country: FR (occurrence: FR)
  Receive Date: 20241111
  Receipt Date: 20241111
  Transmission Date: 20250114
  Serious: Yes (Hospitalization)
  Sender: SANDOZ
  Company Number: None

PATIENT
  Age: 40 Year
  Sex: Male
  Weight: 81 kg

DRUGS (5)
  1. AUGMENTIN [Suspect]
     Active Substance: AMOXICILLIN\CLAVULANATE POTASSIUM
     Indication: Infection
     Dosage: 3 G, QD
     Route: 048
     Dates: start: 20240806, end: 20240810
  2. BACTRIM [Suspect]
     Active Substance: SULFAMETHOXAZOLE\TRIMETHOPRIM
     Indication: Prophylaxis
     Dosage: 3 DOSAGE FORM, QW (COMPRIM?)
     Route: 048
     Dates: start: 20240729, end: 20240816
  3. CIPROFLOXACIN [Suspect]
     Active Substance: CIPROFLOXACIN
     Indication: Infection
     Dosage: 1 G, QD
     Route: 048
     Dates: start: 20240806, end: 20240810
  4. CLADRIBINE [Suspect]
     Active Substance: CLADRIBINE
     Indication: Hairy cell leukaemia
     Dosage: 0.14 MG/KG, QD (SOLUTION INJECTABLE)
     Route: 058
     Dates: start: 20240729, end: 20240802
  5. RITUXIMAB [Suspect]
     Active Substance: RITUXIMAB
     Indication: Hairy cell leukaemia
     Dosage: 375 MG/M2, QW ((MAMMIFERE/HAMSTER/CELLULES CHO))
     Route: 042
     Dates: start: 20240729, end: 20240805

REACTIONS (3)
  - Rash maculo-papular [Recovered/Resolved]
  - Congenital aplasia [Recovered/Resolved]
  - Agranulocytosis [Recovered/Resolved]

NARRATIVE: CASE EVENT DATE: 20240806
